FAERS Safety Report 4268560-1 (Version None)
Quarter: 2004Q1

REPORT INFORMATION
  Report Type: 
  Country: None (occurrence: None)
  Receive Date: 20040108
  Receipt Date: 20031229
  Transmission Date: 20041129
  Serious: Yes (Death)
  Sender: FDA-Public Use
  Company Number: US-JNJFOC-20030801491

PATIENT
  Age: 76 Year
  Sex: Female
  Weight: 83.9154 kg

DRUGS (20)
  1. REMICADE [Suspect]
     Indication: CROHN'S DISEASE
     Dosage: 420 MG, INTRAVENOUS
     Route: 042
     Dates: start: 20010806
  2. TENORMIN [Concomitant]
  3. FUROSEMIDE [Concomitant]
  4. VITAMIN D (ERGOCALCIDFEROL) [Concomitant]
  5. CITRACAL (CALCIUM CITRATE) [Concomitant]
  6. LEVSIN (HYSOCYAMINE SULFATE) [Concomitant]
  7. CENTRUM (CENTRUM) [Concomitant]
  8. PAMELOR [Concomitant]
  9. PRILOSEC [Concomitant]
  10. PREDNISONE [Concomitant]
  11. AZULFIDINE [Concomitant]
  12. ALBUTEROL [Concomitant]
  13. PROTONIX [Concomitant]
  14. XANAX [Concomitant]
  15. FOLIC ACID [Concomitant]
  16. VITAMIN B6 [Concomitant]
  17. VITAMIN E [Concomitant]
  18. LORTAB [Concomitant]
  19. ALLEGRA [Concomitant]
  20. TYLENOL [Concomitant]

REACTIONS (13)
  - ACUTE LEUKAEMIA [None]
  - ANAEMIA [None]
  - ARTHRALGIA [None]
  - CONSTIPATION [None]
  - DRUG TOLERANCE DECREASED [None]
  - FIBROMYALGIA [None]
  - HAEMOPTYSIS [None]
  - INFUSION RELATED REACTION [None]
  - LEUKOCYTOSIS [None]
  - LUNG DISORDER [None]
  - MUSCLE CRAMP [None]
  - PYREXIA [None]
  - THROMBOCYTOPENIA [None]
